FAERS Safety Report 6300866-4 (Version None)
Quarter: 2009Q3

REPORT INFORMATION
  Report Type: 
  Country: None (occurrence: None)
  Receive Date: 20090807
  Receipt Date: 20090803
  Transmission Date: 20100115
  Serious: Yes (Other)
  Sender: FDA-Public Use
  Company Number: IT-TEVA-204714ISR

PATIENT
  Age: 76 Year
  Sex: Female

DRUGS (3)
  1. MIRTAZAPINE [Suspect]
     Indication: DEPRESSION
  2. HYDROCHLOROTHIAZIDE [Suspect]
     Indication: HYPERTENSION
  3. TELMISARTAN [Concomitant]
     Indication: HYPERTENSION

REACTIONS (1)
  - HYPONATRAEMIA [None]
